FAERS Safety Report 9407189 (Version 1)
Quarter: 2013Q3

REPORT INFORMATION
  Report Type: Spontaneous
  Country: US (occurrence: US)
  Receive Date: 20130718
  Receipt Date: 20130718
  Transmission Date: 20140515
  Serious: Yes (Other)
  Sender: FDA-Public Use
  Company Number: US-CELGENEUS-163-21880-12080770

PATIENT
  Sex: Male

DRUGS (19)
  1. REVLIMID [Suspect]
     Indication: PLASMA CELL MYELOMA
     Dosage: 25 MILLIGRAM
     Route: 048
     Dates: start: 20120329
  2. REVLIMID [Suspect]
     Dosage: 15 MILLIGRAM
     Route: 048
  3. DEXAMETHASONE [Concomitant]
     Indication: PRODUCT USED FOR UNKNOWN INDICATION
     Route: 065
  4. TORSEMIDE [Concomitant]
     Indication: PRODUCT USED FOR UNKNOWN INDICATION
     Route: 048
  5. AMLODIPINE BESYLATE [Concomitant]
     Indication: PRODUCT USED FOR UNKNOWN INDICATION
     Route: 048
  6. AZITHROMYCIN [Concomitant]
     Indication: PRODUCT USED FOR UNKNOWN INDICATION
     Route: 048
  7. HYDROCHLOROTHIAZIDE [Concomitant]
     Indication: PRODUCT USED FOR UNKNOWN INDICATION
     Route: 048
  8. SIMVASTATIN [Concomitant]
     Indication: PRODUCT USED FOR UNKNOWN INDICATION
     Route: 048
  9. DOXAZOSIN MESYLATE [Concomitant]
     Indication: PRODUCT USED FOR UNKNOWN INDICATION
     Route: 048
  10. LATANOPROST [Concomitant]
     Indication: PRODUCT USED FOR UNKNOWN INDICATION
     Route: 047
  11. MULTIVITAMINS [Concomitant]
     Indication: PRODUCT USED FOR UNKNOWN INDICATION
     Route: 048
  12. ACETAMINOPHEN [Concomitant]
     Indication: PRODUCT USED FOR UNKNOWN INDICATION
     Route: 048
  13. OFLOXACIN [Concomitant]
     Indication: PRODUCT USED FOR UNKNOWN INDICATION
     Route: 047
  14. CYCLOPENTOLATE [Concomitant]
     Indication: PRODUCT USED FOR UNKNOWN INDICATION
     Route: 047
  15. ASPIRIN [Concomitant]
     Indication: PRODUCT USED FOR UNKNOWN INDICATION
     Route: 048
  16. ASPIRIN [Concomitant]
     Route: 048
  17. BROMDAY [Concomitant]
     Indication: PRODUCT USED FOR UNKNOWN INDICATION
     Route: 047
  18. BROMDAY [Concomitant]
     Route: 048
  19. KLOR-CON [Concomitant]
     Indication: PRODUCT USED FOR UNKNOWN INDICATION
     Route: 048

REACTIONS (5)
  - Haemorrhagic diathesis [Unknown]
  - Full blood count decreased [Unknown]
  - Fatigue [Unknown]
  - Increased tendency to bruise [Unknown]
  - Oedema peripheral [Not Recovered/Not Resolved]
